FAERS Safety Report 26043201 (Version 1)
Quarter: 2025Q4

REPORT INFORMATION
  Report Type: Spontaneous
  Country: US (occurrence: US)
  Receive Date: 20251113
  Receipt Date: 20251113
  Transmission Date: 20260117
  Serious: Yes (Hospitalization)
  Sender: MERCK SHARP & DOHME LLC
  Company Number: US-009507513-2348365

PATIENT
  Sex: Male

DRUGS (1)
  1. KEYTRUDA QLEX [Suspect]
     Active Substance: BERAHYALURONIDASE ALFA-PMPH\PEMBROLIZUMAB

REACTIONS (1)
  - Hospitalisation [Unknown]

NARRATIVE: CASE EVENT DATE: 20251107
